FAERS Safety Report 9666200 (Version 2)
Quarter: 2013Q4

REPORT INFORMATION
  Report Type: Report from Study
  Country: DE (occurrence: DE)
  Receive Date: 20131104
  Receipt Date: 20131104
  Transmission Date: 20140711
  Serious: Yes (Other)
  Sender: FDA-Public Use
  Company Number: PHHO2011DE03555

PATIENT
  Sex: 0

DRUGS (7)
  1. SOM230 [Suspect]
     Indication: GLUCAGONOMA
     Dosage: 60 MG, EVERY 28 DAYS
     Route: 030
     Dates: start: 20110125, end: 20110222
  2. L-THYROXINE [Concomitant]
  3. SIMVASTATIN [Concomitant]
     Indication: HYPERLIPIDAEMIA
  4. PANTOZOL [Concomitant]
     Indication: ABDOMINAL PAIN
  5. KREON [Concomitant]
  6. PROTAPHAN [Concomitant]
     Indication: DIABETES MELLITUS
  7. FUROSEMID [Concomitant]
     Indication: HYPERTENSION

REACTIONS (1)
  - Syncope [Recovered/Resolved]
